FAERS Safety Report 18376543 (Version 1)
Quarter: 2020Q4

REPORT INFORMATION
  Report Type: Spontaneous
  Country: JP (occurrence: JP)
  Receive Date: 20201013
  Receipt Date: 20201013
  Transmission Date: 20210114
  Serious: Yes (Life-Threatening, Hospitalization)
  Sender: FDA-Public Use
  Company Number: JP-MYLANLABS-2020M1085303

PATIENT
  Age: 45 Year
  Sex: Male

DRUGS (19)
  1. IDARUBICIN HYDROCHLORIDE. [Suspect]
     Active Substance: IDARUBICIN HYDROCHLORIDE
     Indication: ACUTE MYELOID LEUKAEMIA
  2. VANCOMYCIN [Suspect]
     Active Substance: VANCOMYCIN
     Indication: CELLULITIS
  3. MEROPENEM. [Suspect]
     Active Substance: MEROPENEM
     Indication: ANTIBIOTIC THERAPY
     Dosage: STARTED ON DAY 29
     Route: 065
  4. LEVOFLOXACIN. [Suspect]
     Active Substance: LEVOFLOXACIN
     Indication: ANTIBIOTIC THERAPY
     Dosage: STARTED ON DAY 38
     Route: 065
  5. IDARUBICIN HYDROCHLORIDE. [Suspect]
     Active Substance: IDARUBICIN HYDROCHLORIDE
     Indication: MARROW HYPERPLASIA
  6. AMIKACIN. [Suspect]
     Active Substance: AMIKACIN
     Indication: FEBRILE NEUTROPENIA
     Route: 065
  7. CYTOSINE ARABINOSIDE [Suspect]
     Active Substance: CYTARABINE
     Indication: MYELOFIBROSIS
  8. CEFOZOPRAN [Suspect]
     Active Substance: CEFOZOPRAN
     Indication: CELLULITIS
     Dosage: AGAIN STARTED ON DAY 49
     Route: 065
  9. AMIKACIN. [Suspect]
     Active Substance: AMIKACIN
     Indication: PNEUMONIA PSEUDOMONAL
  10. CYTOSINE ARABINOSIDE [Suspect]
     Active Substance: CYTARABINE
     Indication: CHEMOTHERAPY
     Dosage: 100 MILLIGRAM/SQ. METER, QD, INDUCTION THERAPY STARTED ON DAY 8
     Route: 065
  11. CYTOSINE ARABINOSIDE [Suspect]
     Active Substance: CYTARABINE
     Indication: ACUTE MYELOID LEUKAEMIA
  12. MEROPENEM. [Suspect]
     Active Substance: MEROPENEM
     Indication: CELLULITIS
     Dosage: STARTED AGAIN ON DAY 56
     Route: 065
  13. IDARUBICIN HYDROCHLORIDE. [Suspect]
     Active Substance: IDARUBICIN HYDROCHLORIDE
     Indication: CHEMOTHERAPY
     Dosage: 12 MILLIGRAM/SQ. METER, INDUCTION THERAPY STARTED ON DAY 8
     Route: 065
  14. CEFOZOPRAN [Suspect]
     Active Substance: CEFOZOPRAN
     Indication: ANTIBIOTIC THERAPY
  15. AMIKACIN. [Suspect]
     Active Substance: AMIKACIN
     Indication: ANTIBIOTIC THERAPY
  16. VANCOMYCIN [Suspect]
     Active Substance: VANCOMYCIN
     Indication: ANTIBIOTIC THERAPY
     Dosage: STARTED ON DAY 29
     Route: 065
  17. LEVOFLOXACIN. [Suspect]
     Active Substance: LEVOFLOXACIN
     Indication: CELLULITIS
  18. CYTOSINE ARABINOSIDE [Suspect]
     Active Substance: CYTARABINE
     Indication: MARROW HYPERPLASIA
     Dosage: 2000 MILLIGRAM/SQ. METER, CONSOLIDATION THERAPY STARTED ON DAY 38
     Route: 065
  19. CEFOZOPRAN [Suspect]
     Active Substance: CEFOZOPRAN
     Indication: FEBRILE NEUTROPENIA
     Dosage: STARTED ON DAY 2
     Route: 065

REACTIONS (5)
  - Stenotrophomonas infection [Recovered/Resolved]
  - Acute respiratory distress syndrome [Recovered/Resolved]
  - Pneumothorax [Recovered/Resolved]
  - Haemorrhagic pneumonia [Recovered/Resolved]
  - Respiratory failure [Recovered/Resolved]
